FAERS Safety Report 5265053-X (Version None)
Quarter: 2007Q1

REPORT INFORMATION
  Report Type: 
  Country: None (occurrence: None)
  Receive Date: 20061121
  Receipt Date: 20060728
  Transmission Date: 20070707
  Serious: No
  Sender: FDA-Public Use
  Company Number: TPA2006A01240

PATIENT
  Sex: 0

DRUGS (2)
  1. ROZEREM [Suspect]
     Dosage: 8 MG, PER ORAL
     Route: 048
  2. TRAZODONE HCL [Suspect]
     Indication: SLEEP DISORDER

REACTIONS (3)
  - CRYING [None]
  - DEPRESSED MOOD [None]
  - DRUG INTERACTION [None]
